FAERS Safety Report 12325841 (Version 1)
Quarter: 2016Q2

REPORT INFORMATION
  Report Type: Spontaneous
  Country: US (occurrence: US)
  Receive Date: 20160503
  Receipt Date: 20160503
  Transmission Date: 20160815
  Serious: Yes (Congenital Anomaly, Other)
  Sender: FDA-Public Use
  Company Number: US-ALEMBIC PHARMACUETICALS LIMITED-2016SCAL000312

PATIENT

DRUGS (1)
  1. LEFLUNOMIDE. [Suspect]
     Active Substance: LEFLUNOMIDE
     Indication: PRODUCT USED FOR UNKNOWN INDICATION
     Dosage: UNK
     Route: 064

REACTIONS (7)
  - Aplasia cutis congenita [Unknown]
  - Patent ductus arteriosus [Unknown]
  - Spina bifida occulta [Unknown]
  - Skeletal dysplasia [Unknown]
  - Heart block congenital [Unknown]
  - Foetal exposure during pregnancy [Unknown]
  - Pierre Robin syndrome [Unknown]
